FAERS Safety Report 6130960-2 (Version None)
Quarter: 2009Q1

REPORT INFORMATION
  Report Type: 
  Country: None (occurrence: None)
  Receive Date: 20090325
  Receipt Date: 20090323
  Transmission Date: 20090719
  Serious: Yes (Other)
  Sender: FDA-Public Use
  Company Number: US-BRISTOL-MYERS SQUIBB COMPANY-14557375

PATIENT
  Sex: Female

DRUGS (2)
  1. CYTOXAN [Suspect]
     Dates: start: 20090101, end: 20090101
  2. TAXOTERE [Suspect]
     Indication: BREAST CANCER
     Dosage: FORMULATION: SOLUTION FOR INJECTION.
     Route: 042

REACTIONS (1)
  - MUSCLE NECROSIS [None]
